FAERS Safety Report 10695299 (Version 1)
Quarter: 2014Q4

REPORT INFORMATION
  Report Type: Spontaneous
  Country: US (occurrence: None)
  Receive Date: 20141223
  Receipt Date: 20141223
  Transmission Date: 20150529
  Serious: No
  Sender: FDA-Public Use
  Company Number: 1000072420

PATIENT
  Age: 47 Year
  Sex: Female

DRUGS (7)
  1. GABAPENTIN. [Concomitant]
     Active Substance: GABAPENTIN
  2. ATORVASTATIN [Concomitant]
     Active Substance: ATORVASTATIN
  3. BUSPAR (BUSPIRONE HYDROCHLORIDE) (BUSPIRONE HYDROCHLORIDE) [Concomitant]
  4. LISINOPRIL. [Concomitant]
     Active Substance: LISINOPRIL
  5. LINZESS [Suspect]
     Active Substance: LINACLOTIDE
     Indication: IRRITABLE BOWEL SYNDROME
     Dosage: 145 MCG. 1 IN 1 D
     Route: 048
     Dates: start: 201403
  6. EFFEXOR [Concomitant]
     Active Substance: VENLAFAXINE HYDROCHLORIDE
  7. KLONOPIN [Concomitant]
     Active Substance: CLONAZEPAM

REACTIONS (3)
  - Medication error [None]
  - Diarrhoea [None]
  - Off label use [None]

NARRATIVE: CASE EVENT DATE: 2014
